FAERS Safety Report 4764395-1 (Version None)
Quarter: 2005Q3

REPORT INFORMATION
  Report Type: 
  Country: None (occurrence: None)
  Receive Date: 20050906
  Receipt Date: 20050822
  Transmission Date: 20060218
  Serious: Yes (Death)
  Sender: FDA-Public Use
  Company Number: 0507-330

PATIENT
  Age: 30 Hour
  Sex: Male
  Weight: 0.64 kg

DRUGS (6)
  1. CUROSURF [Suspect]
     Indication: ACUTE RESPIRATORY DISTRESS SYNDROME
     Dosage: 2.5 ML, ENDOTRACHEALLY
     Route: 007
     Dates: start: 20050715
  2. CUROSURF [Suspect]
     Dosage: 1.25ML, AGAIN 13 HRS LATER
     Dates: start: 20050715
  3. AMPICILLIN [Concomitant]
  4. GENTAMICIN [Concomitant]
  5. HYDROCORTISONE [Concomitant]
  6. DOPAMINE [Concomitant]

REACTIONS (3)
  - CARDIO-RESPIRATORY ARREST NEONATAL [None]
  - NEONATAL DISORDER [None]
  - PULMONARY HAEMORRHAGE [None]
